FAERS Safety Report 8286497-8 (Version None)
Quarter: 2012Q2

REPORT INFORMATION
  Report Type: 
  Country: None (occurrence: None)
  Receive Date: 20120416
  Receipt Date: 20120410
  Transmission Date: 20120825
  Serious: Yes (Life-Threatening, Hospitalization, Other)
  Sender: FDA-Public Use
  Company Number: DE-PFIZER INC-2012017737

PATIENT
  Age: 78 Year
  Sex: Male
  Weight: 72 kg

DRUGS (12)
  1. TEMSIROLIMUS [Suspect]
     Dosage: 75 MG, WEEKLY
     Route: 042
     Dates: start: 20110629, end: 20110629
  2. INTRATECT [Concomitant]
     Dosage: 10 G, UNK
     Route: 042
  3. TEMSIROLIMUS [Suspect]
     Dosage: 75 MG, WEEKLY
     Route: 042
     Dates: start: 20111123, end: 20111130
  4. TEMSIROLIMUS [Suspect]
     Dosage: 75 MG, WEEKLY
     Route: 042
     Dates: start: 20111214, end: 20111214
  5. TEMSIROLIMUS [Suspect]
     Dosage: 75 MG, WEEKLY
     Route: 042
     Dates: start: 20110713, end: 20110720
  6. TEMSIROLIMUS [Suspect]
     Dosage: 75 MG, WEEKLY
     Route: 042
     Dates: start: 20111012, end: 20111019
  7. TEMSIROLIMUS [Suspect]
     Dosage: 75 MG, WEEKLY
     Route: 042
     Dates: start: 20110803, end: 20110810
  8. TEMSIROLIMUS [Suspect]
     Dosage: 75 MG, WEEKLY
     Route: 042
     Dates: start: 20110831, end: 20110907
  9. TEMSIROLIMUS [Suspect]
     Dosage: 75 MG, WEEKLY
     Route: 042
     Dates: start: 20110921, end: 20110928
  10. DEXAMETHASONE [Concomitant]
     Dosage: 8 MG, WEEKLY BEFORE TORISEL
  11. TEMSIROLIMUS [Suspect]
     Indication: MANTLE CELL LYMPHOMA RECURRENT
     Dosage: 175 MG, WEEKLY
     Route: 042
     Dates: start: 20110601, end: 20110612
  12. TEMSIROLIMUS [Suspect]
     Dosage: 75 MG, WEEKLY
     Route: 042
     Dates: start: 20111102, end: 20111109

REACTIONS (4)
  - BLOOD ELECTROLYTES ABNORMAL [None]
  - DEHYDRATION [None]
  - URINARY TRACT INFECTION [None]
  - ACUTE PRERENAL FAILURE [None]
